FAERS Safety Report 7247967-4 (Version None)
Quarter: 2011Q1

REPORT INFORMATION
  Report Type: 
  Country: None (occurrence: None)
  Receive Date: 20110127
  Receipt Date: 20110121
  Transmission Date: 20110831
  Serious: Yes (Other)
  Sender: FDA-Public Use
  Company Number: DE-BAYER-2011-003728

PATIENT
  Sex: Female
  Weight: 60 kg

DRUGS (4)
  1. BETAFERON [Suspect]
     Indication: MULTIPLE SCLEROSIS
     Dosage: 8 MIU, QOD
     Dates: start: 20080601
  2. METOCLOPRAMID [Concomitant]
     Indication: HEADACHE
  3. BETAFERON [Suspect]
     Dosage: 4 MIU, QOD
  4. PARACETAMOL [Concomitant]
     Indication: HEADACHE

REACTIONS (2)
  - INJECTION SITE NECROSIS [None]
  - INDURATION [None]
